FAERS Safety Report 8427845-5 (Version None)
Quarter: 2012Q2

REPORT INFORMATION
  Report Type: 
  Country: None (occurrence: None)
  Receive Date: 20120611
  Receipt Date: 20120528
  Transmission Date: 20120825
  Serious: Yes (Death, Other)
  Sender: FDA-Public Use
  Company Number: DE-TEVA-340531GER

PATIENT
  Age: 67 Year
  Sex: Male

DRUGS (13)
  1. VINCRISTINE [Suspect]
     Indication: PLASMABLASTIC LYMPHOMA
     Dosage: PART OF R-CHOP CHEMOTHERAPY
     Route: 065
  2. RITUXIMAB [Suspect]
     Dosage: PART OF R-CHOP CHEMOTHERAPY; LATER RECEIVED WITH BENDAMUSTINE
     Route: 065
  3. DOXORUBICIN HCL [Suspect]
     Indication: PLASMABLASTIC LYMPHOMA
     Dosage: PART OF R-CHOP CHEMOTHERAPY
     Route: 065
  4. BENDAMUSTINE [Suspect]
     Route: 065
  5. RITUXIMAB [Suspect]
     Route: 065
  6. PREDNISOLONE [Suspect]
     Indication: IMMUNOSUPPRESSANT DRUG THERAPY
     Dosage: 5 MILLIGRAM;
     Route: 065
  7. IMMUNE GLOBULIN NOS [Concomitant]
     Indication: PLASMABLASTIC LYMPHOMA
     Route: 042
  8. PREDNISONE TAB [Suspect]
     Indication: PLASMABLASTIC LYMPHOMA
     Dosage: PART OF R-CHOP CHEMOTHERAPY
     Route: 065
  9. BENDAMUSTINE [Suspect]
     Indication: PLASMABLASTIC LYMPHOMA
     Route: 065
  10. BENDAMUSTINE [Suspect]
     Dosage: PART OF R-CHOP CHEMOTHERAPY; LATER RECEIVED WITH BENDAMUSTINE
     Route: 065
  11. RITUXIMAB [Suspect]
     Indication: PLASMABLASTIC LYMPHOMA
     Dosage: 2 CYCLES; FOLLOWED BY R-CHOP
     Route: 065
  12. CYCLOSPORINE [Suspect]
     Indication: IMMUNOSUPPRESSANT DRUG THERAPY
     Dosage: 200 MILLIGRAM;
     Route: 065
  13. CYCLOPHOSPHAMIDE [Suspect]
     Indication: PLASMABLASTIC LYMPHOMA
     Dosage: PART OF R-CHOP CHEMOTHERAPY
     Route: 065

REACTIONS (4)
  - INFECTION [None]
  - POST TRANSPLANT LYMPHOPROLIFERATIVE DISORDER [None]
  - NEUTROPENIA [None]
  - PLASMABLASTIC LYMPHOMA [None]
